FAERS Safety Report 17224185 (Version 2)
Quarter: 2020Q1

REPORT INFORMATION
  Report Type: Spontaneous
  Country: US (occurrence: US)
  Receive Date: 20200102
  Receipt Date: 20200320
  Transmission Date: 20200409
  Serious: Yes (Hospitalization, Other)
  Sender: FDA-Public Use
  Company Number: US-ASTRAZENECA-2019SF91681

PATIENT
  Age: 14878 Day
  Sex: Male

DRUGS (44)
  1. OMEPRAZOLE. [Suspect]
     Active Substance: OMEPRAZOLE
     Indication: GASTROOESOPHAGEAL REFLUX DISEASE
     Route: 048
     Dates: start: 20121212
  2. BYSTOLIC [Concomitant]
     Active Substance: NEBIVOLOL HYDROCHLORIDE
     Indication: HYPERTENSION
     Dates: start: 2011
  3. GLIPIZIDE. [Concomitant]
     Active Substance: GLIPIZIDE
  4. NIACIN. [Concomitant]
     Active Substance: NIACIN
  5. NIFEDICAL XL [Concomitant]
     Active Substance: NIFEDIPINE
  6. ALBUTEROL. [Concomitant]
     Active Substance: ALBUTEROL
  7. NEXIUM [Suspect]
     Active Substance: ESOMEPRAZOLE MAGNESIUM
     Indication: GASTROOESOPHAGEAL REFLUX DISEASE
     Route: 048
     Dates: start: 20031113
  8. OXYCOD [Concomitant]
  9. DICLOFENAC [Concomitant]
     Active Substance: DICLOFENAC
  10. ALLEGRA [Concomitant]
     Active Substance: FEXOFENADINE HYDROCHLORIDE
  11. GABAPENTIN. [Concomitant]
     Active Substance: GABAPENTIN
  12. PROTONIX [Suspect]
     Active Substance: PANTOPRAZOLE SODIUM
     Indication: GASTROOESOPHAGEAL REFLUX DISEASE
     Route: 065
     Dates: start: 20041109
  13. AVELOX [Concomitant]
     Active Substance: MOXIFLOXACIN HYDROCHLORIDE
     Indication: INFECTION
     Dates: start: 2012
  14. HYDROCODONE [Concomitant]
     Active Substance: HYDROCODONE
     Indication: PAIN
     Dates: start: 2012
  15. OMEPRAZOLE. [Suspect]
     Active Substance: OMEPRAZOLE
     Indication: GASTROOESOPHAGEAL REFLUX DISEASE
     Route: 065
     Dates: start: 2007, end: 2019
  16. OMEPRAZOLE. [Suspect]
     Active Substance: OMEPRAZOLE
     Indication: GASTROOESOPHAGEAL REFLUX DISEASE
     Route: 048
     Dates: start: 20190604
  17. AMLODIPINE [Concomitant]
     Active Substance: AMLODIPINE BESYLATE
     Indication: HYPERTENSION
     Dates: start: 2014
  18. TUSSIONEX PENNKINETIC [Concomitant]
     Active Substance: CHLORPHENIRAMINE\HYDROCODONE
  19. CARMOL [Concomitant]
  20. VENLAFAXINE [Concomitant]
     Active Substance: VENLAFAXINE HYDROCHLORIDE
  21. CARVEDILOL. [Concomitant]
     Active Substance: CARVEDILOL
  22. SILDENAFIL. [Concomitant]
     Active Substance: SILDENAFIL
  23. CYCLOBENZAPRINE. [Concomitant]
     Active Substance: CYCLOBENZAPRINE
  24. DIVALPROEX [Concomitant]
     Active Substance: DIVALPROEX SODIUM
  25. NEXIUM [Suspect]
     Active Substance: ESOMEPRAZOLE MAGNESIUM
     Indication: GASTROOESOPHAGEAL REFLUX DISEASE
     Route: 048
     Dates: start: 2000, end: 2016
  26. LEVITRA [Concomitant]
     Active Substance: VARDENAFIL HYDROCHLORIDE
  27. LEVOFLOXACIN. [Concomitant]
     Active Substance: LEVOFLOXACIN
  28. TAMIFLU [Concomitant]
     Active Substance: OSELTAMIVIR PHOSPHATE
  29. FLUTICASONE. [Concomitant]
     Active Substance: FLUTICASONE
  30. NIFEDIPINE. [Concomitant]
     Active Substance: NIFEDIPINE
  31. NAPROXEN. [Concomitant]
     Active Substance: NAPROXEN
  32. LOSARTAN. [Concomitant]
     Active Substance: LOSARTAN
  33. AZITHROMYCIN ANHYDROUS. [Concomitant]
     Active Substance: AZITHROMYCIN ANHYDROUS
     Indication: INFECTION
     Dates: start: 2012, end: 2017
  34. HYDROXYZINE [Concomitant]
     Active Substance: HYDROXYZINE HYDROCHLORIDE
     Indication: MULTIPLE ALLERGIES
     Dates: start: 2014
  35. ZANTAC [Concomitant]
     Active Substance: RANITIDINE HYDROCHLORIDE
     Dates: start: 2011, end: 2013
  36. NEXIUM [Suspect]
     Active Substance: ESOMEPRAZOLE MAGNESIUM
     Indication: GASTROOESOPHAGEAL REFLUX DISEASE
     Route: 048
     Dates: start: 2000, end: 2016
  37. PROTONIX [Suspect]
     Active Substance: PANTOPRAZOLE SODIUM
     Indication: GASTROOESOPHAGEAL REFLUX DISEASE
     Route: 048
     Dates: start: 2000, end: 2016
  38. PEPCID [Concomitant]
     Active Substance: FAMOTIDINE
     Dates: start: 2012
  39. BENAZEP [Concomitant]
  40. ANDROGEL [Concomitant]
     Active Substance: TESTOSTERONE
  41. BUSPIRONE [Concomitant]
     Active Substance: BUSPIRONE HYDROCHLORIDE
  42. PRAZOSIN. [Concomitant]
     Active Substance: PRAZOSIN
  43. TAMSULOSIN [Concomitant]
     Active Substance: TAMSULOSIN
  44. ZITHROMAX [Concomitant]
     Active Substance: AZITHROMYCIN DIHYDRATE

REACTIONS (4)
  - Nephropathy [Unknown]
  - Renal failure [Unknown]
  - Chronic kidney disease-mineral and bone disorder [Unknown]
  - Chronic kidney disease [Not Recovered/Not Resolved]

NARRATIVE: CASE EVENT DATE: 20120221
